FAERS Safety Report 24412023 (Version 1)
Quarter: 2024Q4

REPORT INFORMATION
  Report Type: Spontaneous
  Country: US (occurrence: US)
  Receive Date: 20241008
  Receipt Date: 20241008
  Transmission Date: 20250114
  Serious: No
  Sender: CELLTRION
  Company Number: US-CELLTRION INC.-2024US004527

PATIENT

DRUGS (7)
  1. INFLIXIMAB [Suspect]
     Active Substance: INFLIXIMAB
     Indication: Polyarthritis
  2. ADALIMUMAB [Concomitant]
     Active Substance: ADALIMUMAB
     Indication: STING-associated vasculopathy with onset in infancy
     Dosage: 10 MG BIWEEKLY
  3. ADALIMUMAB [Concomitant]
     Active Substance: ADALIMUMAB
     Dosage: 10 MG WEEKLY
  4. TOFACITINIB [Concomitant]
     Active Substance: TOFACITINIB
     Indication: STING-associated vasculopathy with onset in infancy
     Dosage: 3.2 MG TWICE DAILY FOR 6 MONTHS
  5. AZATHIOPRINE [Concomitant]
     Active Substance: AZATHIOPRINE
     Indication: STING-associated vasculopathy with onset in infancy
  6. HYDROXYCHLOROQUINE [Concomitant]
     Active Substance: HYDROXYCHLOROQUINE
     Indication: STING-associated vasculopathy with onset in infancy
     Dosage: DAILY
  7. METHOTREXATE [Concomitant]
     Active Substance: METHOTREXATE
     Dosage: 8 MONTHS MONOTHERAPY

REACTIONS (1)
  - Intentional product use issue [Unknown]
